FAERS Safety Report 13892435 (Version 1)
Quarter: 2017Q3

REPORT INFORMATION
  Report Type: Spontaneous
  Country: US (occurrence: US)
  Receive Date: 20170822
  Receipt Date: 20170822
  Transmission Date: 20171127
  Serious: No
  Sender: FDA-Public Use
  Company Number: US-ENDO PHARMACEUTICALS INC-2017-001197

PATIENT
  Age: 38 Year
  Sex: Male
  Weight: 72.56 kg

DRUGS (3)
  1. TESTOPEL [Suspect]
     Active Substance: TESTOSTERONE
     Indication: TESTICULAR FAILURE
     Dosage: 750 MG, 10 PELLETS, IMPLANTED INTO SQ INTO THE BUTTOCKS REGION WITH SUPPLIED PLUNGER AND TROCAR
     Route: 058
     Dates: start: 20161118, end: 20170301
  2. TESTOPEL [Suspect]
     Active Substance: TESTOSTERONE
     Indication: BLOOD TESTOSTERONE DECREASED
  3. TRAMADOL. [Concomitant]
     Active Substance: TRAMADOL
     Indication: BACK PAIN

REACTIONS (5)
  - Prescribed overdose [Recovered/Resolved]
  - Implant site extravasation [Recovering/Resolving]
  - Implant site pain [Unknown]
  - Implant site haematoma [Recovering/Resolving]
  - Product quality issue [Unknown]

NARRATIVE: CASE EVENT DATE: 20161118
